FAERS Safety Report 6500665-4 (Version None)
Quarter: 2009Q4

REPORT INFORMATION
  Report Type: 
  Country: None (occurrence: None)
  Receive Date: 20091216
  Receipt Date: 20090102
  Transmission Date: 20100525
  Serious: No
  Sender: FDA-Public Use
  Company Number: A0762253A

PATIENT
  Age: 71 Year
  Sex: Male

DRUGS (2)
  1. COMMIT [Suspect]
  2. NICODERM CQ [Suspect]

REACTIONS (3)
  - DIARRHOEA [None]
  - NAUSEA [None]
  - RASH [None]
